FAERS Safety Report 8760211 (Version 7)
Quarter: 2015Q2

REPORT INFORMATION
  Report Type: Report from Study
  Country: DE (occurrence: DE)
  Receive Date: 20120829
  Receipt Date: 20150429
  Transmission Date: 20150821
  Serious: Yes (Hospitalization)
  Sender: FDA-Public Use
  Company Number: DE-ROCHE-1087670

PATIENT
  Age: 63 Year
  Sex: Male
  Weight: 73 kg

DRUGS (7)
  1. SPASMEX (GERMANY) [Concomitant]
     Route: 065
     Dates: start: 20120326
  2. PANTOPRAZOLE SODIUM. [Concomitant]
     Active Substance: PANTOPRAZOLE SODIUM
     Route: 065
     Dates: start: 20120418
  3. CANDIO HERMAL [Concomitant]
     Dosage: SOFTPASTE
     Route: 065
     Dates: start: 20120621, end: 20120711
  4. VEMURAFENIB [Suspect]
     Active Substance: VEMURAFENIB
     Indication: METASTATIC MALIGNANT MELANOMA
     Dosage: DATE OF LAST DOSE PRIOR TO SAE 11/JUL/2012
     Route: 048
     Dates: start: 20111104
  5. IDEOS [Concomitant]
     Active Substance: CALCIUM CARBONATE\CHOLECALCIFEROL
     Route: 065
     Dates: start: 20120301
  6. TESTOSTERON [Concomitant]
     Active Substance: TESTOSTERONE
     Dosage: DEPOT
     Route: 065
     Dates: start: 20120430
  7. DEXAMETHASON [Concomitant]
     Active Substance: DEXAMETHASONE
     Route: 065
     Dates: start: 20120525, end: 20120620

REACTIONS (1)
  - Eye naevus [Recovered/Resolved]

NARRATIVE: CASE EVENT DATE: 20120711
